FAERS Safety Report 6941961-6 (Version None)
Quarter: 2010Q3

REPORT INFORMATION
  Report Type: 
  Country: None (occurrence: None)
  Receive Date: 20100826
  Receipt Date: 20100817
  Transmission Date: 20110219
  Serious: No
  Sender: FDA-Public Use
  Company Number: NZ-JNJFOC-20100805906

PATIENT
  Sex: Female
  Weight: 72 kg

DRUGS (11)
  1. GOLIMUMAB [Suspect]
     Indication: RHEUMATOID ARTHRITIS
     Route: 058
  2. GOLIMUMAB [Suspect]
     Route: 058
  3. METHOTREXATE [Suspect]
     Indication: RHEUMATOID ARTHRITIS
     Route: 048
  4. PLACEBO [Suspect]
     Indication: RHEUMATOID ARTHRITIS
     Route: 048
  5. NAPROXEN [Concomitant]
     Route: 048
  6. SIMVASTATIN [Concomitant]
     Route: 048
  7. BIMATOPROST [Concomitant]
     Route: 047
  8. ETIDRONATE DISODIUM [Concomitant]
     Route: 048
  9. CALCIUM [Concomitant]
     Route: 048
  10. CHOLECALCIFEROL [Concomitant]
     Route: 048
  11. PAROXETINE [Concomitant]
     Route: 048

REACTIONS (1)
  - BASAL CELL CARCINOMA [None]
